FAERS Safety Report 9391182 (Version 2)
Quarter: 2013Q3

REPORT INFORMATION
  Report Type: Report from Study
  Country: FR (occurrence: FR)
  Receive Date: 20130709
  Receipt Date: 20130917
  Transmission Date: 20140515
  Serious: Yes (Other)
  Sender: FDA-Public Use
  Company Number: PHHY2013FR070916

PATIENT
  Age: 65 Year
  Sex: Female

DRUGS (7)
  1. MYCOPHENOLIC ACID [Suspect]
     Indication: RENAL TRANSPLANT
     Dosage: UNK
     Dates: start: 20100624
  2. NEORAL [Suspect]
     Indication: RENAL TRANSPLANT
     Dosage: UNK
     Dates: start: 20110121, end: 20110303
  3. NEORAL [Suspect]
     Dosage: UNK
     Dates: start: 20120315
  4. PROGRAF [Concomitant]
     Indication: RENAL TRANSPLANT
     Dosage: UNK
     Dates: start: 20110304, end: 20110926
  5. ADVAGRAF [Concomitant]
     Indication: RENAL TRANSPLANT
     Dosage: UNK
     Dates: start: 20110927, end: 20120314
  6. SOLUMEDROL [Concomitant]
     Indication: RENAL TRANSPLANT
     Dosage: UNK
     Dates: start: 20110304, end: 20110306
  7. SOLUPRED [Concomitant]
     Indication: RENAL TRANSPLANT
     Dosage: UNK
     Dates: start: 20100624

REACTIONS (3)
  - Metabolic acidosis [Recovered/Resolved]
  - Vomiting [Recovered/Resolved]
  - Diarrhoea [Recovered/Resolved]
